FAERS Safety Report 21672281 (Version 6)
Quarter: 2023Q1

REPORT INFORMATION
  Report Type: Report from Study
  Country: US (occurrence: US)
  Receive Date: 20221202
  Receipt Date: 20230329
  Transmission Date: 20230418
  Serious: Yes (Hospitalization)
  Sender: FDA-Public Use
  Company Number: US-ABBVIE-4219356

PATIENT
  Age: 71 Year
  Sex: Female

DRUGS (2)
  1. HUMIRA [Suspect]
     Active Substance: ADALIMUMAB
     Indication: Colitis ulcerative
     Dosage: THE CESSATION DATE OF EVENT RASH, DIARRHEA, HUMIRA WAS NOT ENOUGH IN BLOOD , HUMIRA WAS NOT WROKI...
     Route: 058
     Dates: start: 202203
  2. HUMIRA [Suspect]
     Active Substance: ADALIMUMAB
     Dosage: DRUG START DATE-2022
     Route: 058

REACTIONS (16)
  - Decubitus ulcer [Recovering/Resolving]
  - Therapeutic product effect decreased [Recovered/Resolved]
  - Laryngitis [Unknown]
  - Scab [Unknown]
  - Acrochordon [Unknown]
  - Rash macular [Unknown]
  - Localised infection [Unknown]
  - Skin abrasion [Unknown]
  - Blister [Unknown]
  - Diarrhoea [Recovered/Resolved]
  - Weight decreased [Unknown]
  - Rash pruritic [Recovered/Resolved]
  - Retching [Unknown]
  - Dysphonia [Unknown]
  - Erythema [Unknown]
  - Drug level abnormal [Recovered/Resolved]

NARRATIVE: CASE EVENT DATE: 20220301
